FAERS Safety Report 8895091 (Version 1)
Quarter: 2012Q4

REPORT INFORMATION
  Report Type: 
  Country: US (occurrence: US)
  Receive Date: 20121107
  Receipt Date: 20121107
  Transmission Date: 20130627
  Serious: No
  Sender: FDA-Public Use
  Company Number: US-AMGEN-USASP2011056777

PATIENT
  Sex: Female

DRUGS (8)
  1. ENBREL [Suspect]
     Indication: PRODUCT USED FOR UNKNOWN INDICATION
     Dosage: 50 mg, qwk
     Route: 058
  2. HYZAAR [Concomitant]
  3. COD LIVER OIL [Concomitant]
  4. GABAPENTIN [Concomitant]
  5. BABY ASPIRIN [Concomitant]
  6. LEVOTHYROXIN [Concomitant]
     Dosage: 1000 UNK, UNK
  7. MULTIVITAMIN                       /00097801/ [Concomitant]
  8. CRESTOR [Concomitant]

REACTIONS (5)
  - Blister [Unknown]
  - Erythema [Unknown]
  - Laceration [Unknown]
  - Impaired healing [Unknown]
  - Hypersensitivity [Unknown]
